FAERS Safety Report 7933628-2 (Version None)
Quarter: 2011Q4

REPORT INFORMATION
  Report Type: 
  Country: None (occurrence: None)
  Receive Date: 20111122
  Receipt Date: 20100702
  Transmission Date: 20120403
  Serious: Yes (Hospitalization)
  Sender: FDA-Public Use
  Company Number: PHHY2010TW43666

PATIENT
  Sex: Male

DRUGS (5)
  1. GLEEVEC [Suspect]
     Dosage: 400 MG DAILY
     Route: 048
  2. SUTENT [Suspect]
     Dosage: 3 DF, UNK
     Route: 048
     Dates: start: 20090801, end: 20100101
  3. TASIGNA [Suspect]
     Dosage: 800 MG, UNK
     Route: 048
  4. TASIGNA [Suspect]
     Indication: GASTROINTESTINAL STROMAL TUMOUR
     Dosage: 800 MG, UNK
     Route: 048
     Dates: start: 20100101
  5. GLEEVEC [Suspect]
     Indication: GASTROINTESTINAL STROMAL TUMOUR
     Dosage: 800 MG, DAILY
     Route: 048
     Dates: start: 20100101

REACTIONS (10)
  - NEOPLASM MALIGNANT [None]
  - GASTROINTESTINAL STROMAL TUMOUR [None]
  - NEOPLASM RECURRENCE [None]
  - HAIR TEXTURE ABNORMAL [None]
  - DRY SKIN [None]
  - DRY EYE [None]
  - NASOPHARYNGITIS [None]
  - FATIGUE [None]
  - RASH [None]
  - MUSCULOSKELETAL PAIN [None]
